FAERS Safety Report 13828635 (Version 1)
Quarter: 2017Q3

REPORT INFORMATION
  Report Type: Spontaneous
  Country: US (occurrence: US)
  Receive Date: 20170802
  Receipt Date: 20170802
  Transmission Date: 20171127
  Serious: Yes (Other)
  Sender: FDA-Public Use
  Company Number: None

PATIENT
  Age: 46 Year
  Sex: Female
  Weight: 83.7 kg

DRUGS (2)
  1. METFORMIN 500MG [Suspect]
     Active Substance: METFORMIN HYDROCHLORIDE
     Indication: INFERTILITY
     Dosage: ?          QUANTITY:1 TABLET(S);?
     Route: 048
     Dates: start: 20170729, end: 20170802
  2. METFORMIN 500MG [Suspect]
     Active Substance: METFORMIN HYDROCHLORIDE
     Indication: INSULIN RESISTANCE
     Dosage: ?          QUANTITY:1 TABLET(S);?
     Route: 048
     Dates: start: 20170729, end: 20170802

REACTIONS (6)
  - Diarrhoea [None]
  - Abdominal rigidity [None]
  - Abdominal pain [None]
  - Gastrointestinal hypermotility [None]
  - Flatulence [None]
  - Headache [None]

NARRATIVE: CASE EVENT DATE: 20170802
